FAERS Safety Report 6695017-0 (Version None)
Quarter: 2010Q2

REPORT INFORMATION
  Report Type: 
  Country: None (occurrence: None)
  Receive Date: 20100423
  Receipt Date: 20100413
  Transmission Date: 20101027
  Serious: Yes (Hospitalization, Other)
  Sender: FDA-Public Use
  Company Number: PHHY2010HK23391

PATIENT
  Age: 28 Year
  Sex: Female

DRUGS (1)
  1. METHYLPHENIDATE [Suspect]
     Dosage: UNK

REACTIONS (6)
  - ACUTE CORONARY SYNDROME [None]
  - CHEST PAIN [None]
  - ELECTROCARDIOGRAM ST SEGMENT DEPRESSION [None]
  - LEFT VENTRICULAR DYSFUNCTION [None]
  - OVERDOSE [None]
  - TROPONIN I INCREASED [None]
